FAERS Safety Report 9492225 (Version 2)
Quarter: 2013Q3

REPORT INFORMATION
  Report Type: Spontaneous
  Country: ZA (occurrence: ZA)
  Receive Date: 20130830
  Receipt Date: 20130830
  Transmission Date: 20140515
  Serious: Yes (Hospitalization, Other)
  Sender: FDA-Public Use
  Company Number: ZA-ABBOTT-13P-143-1131600-00

PATIENT
  Age: 54 Year
  Sex: Female
  Weight: 122 kg

DRUGS (1)
  1. HUMIRA [Suspect]
     Indication: RHEUMATOID ARTHRITIS
     Route: 058
     Dates: start: 2009, end: 201308

REACTIONS (9)
  - Lung disorder [Unknown]
  - Lung infiltration [Unknown]
  - Tuberculosis [Unknown]
  - Pulmonary tuberculosis [Unknown]
  - Pneumonia [Unknown]
  - Pulmonary tuberculosis [Unknown]
  - Cough [Unknown]
  - Night sweats [Unknown]
  - Weight decreased [Unknown]
